FAERS Safety Report 4314770-4 (Version None)
Quarter: 2004Q1

REPORT INFORMATION
  Report Type: 
  Country: None (occurrence: None)
  Receive Date: 20040308
  Receipt Date: 20040226
  Transmission Date: 20041129
  Serious: Yes (Life-Threatening)
  Sender: FDA-Public Use
  Company Number: 2004AP00432

PATIENT
  Age: 81 Year
  Sex: Female

DRUGS (5)
  1. IRESSA [Suspect]
     Indication: ADENOCARCINOMA
     Dosage: 250 MG DAILY PO
     Route: 048
     Dates: start: 20030827, end: 20030910
  2. IRESSA [Suspect]
     Indication: NON-SMALL CELL LUNG CANCER
     Dosage: 250 MG DAILY PO
     Route: 048
     Dates: start: 20030827, end: 20030910
  3. PACLITAXEL [Concomitant]
  4. TEGAFUR URACIL [Concomitant]
  5. RADIOTHERAPY [Concomitant]

REACTIONS (5)
  - ATRIAL THROMBOSIS [None]
  - DECREASED APPETITE [None]
  - DEMENTIA [None]
  - METASTASES TO CENTRAL NERVOUS SYSTEM [None]
  - RADIATION INJURY [None]
